FAERS Safety Report 6757860-9 (Version None)
Quarter: 2010Q2

REPORT INFORMATION
  Report Type: 
  Country: None (occurrence: None)
  Receive Date: 20100604
  Receipt Date: 20100604
  Transmission Date: 20101027
  Serious: Yes (Hospitalization)
  Sender: FDA-Public Use
  Company Number: None

PATIENT
  Age: 1 Month
  Sex: Male
  Weight: 2.7216 kg

DRUGS (1)
  1. AZITHROMYCIN [Suspect]

REACTIONS (2)
  - MATERNAL DRUGS AFFECTING FOETUS [None]
  - PYLORIC STENOSIS [None]
